FAERS Safety Report 8070024-4 (Version None)
Quarter: 2012Q1

REPORT INFORMATION
  Report Type: 
  Country: None (occurrence: None)
  Receive Date: 20120125
  Receipt Date: 20120119
  Transmission Date: 20120608
  Serious: No
  Sender: FDA-Public Use
  Company Number: US-PFIZER INC-2011284325

PATIENT
  Sex: Female
  Weight: 72.562 kg

DRUGS (5)
  1. ATACAND [Concomitant]
     Indication: HYPERTENSION
     Dosage: UNK
  2. FLECTOR [Suspect]
     Indication: BURSITIS
     Dosage: UNK
     Dates: start: 20111118
  3. ZETIA [Concomitant]
     Indication: BLOOD CHOLESTEROL INCREASED
     Dosage: UNK
     Dates: start: 20111001
  4. TOPROL-XL [Concomitant]
     Indication: HYPERTENSION
     Dosage: UNK
  5. FLECTOR [Suspect]
     Indication: PAIN

REACTIONS (4)
  - ABDOMINAL DISCOMFORT [None]
  - ARTHRALGIA [None]
  - DRUG ADMINISTRATION ERROR [None]
  - DRUG INEFFECTIVE [None]
